FAERS Safety Report 4892527-3 (Version None)
Quarter: 2006Q1

REPORT INFORMATION
  Report Type: 
  Country: None (occurrence: None)
  Receive Date: 20060126
  Receipt Date: 20060109
  Transmission Date: 20060701
  Serious: Yes (Death, Hospitalization)
  Sender: FDA-Public Use
  Company Number: US-BRISTOL-MYERS SQUIBB COMPANY-13257365

PATIENT
  Age: 73 Year
  Sex: Male

DRUGS (23)
  1. CETUXIMAB [Suspect]
     Indication: NON-SMALL CELL LUNG CANCER
     Dosage: 1ST DOSE 400 MG/M2 (14-NOV-05),2ND INFUSION 452 MG (21-NOV),443 MG(4TH INFUSION)-13-DEC-2005.
     Route: 042
     Dates: start: 20051213, end: 20051213
  2. PEMETREXED DISODIUM [Suspect]
     Indication: NON-SMALL CELL LUNG CANCER
     Dosage: THERAPY INITIATED 14-NOV-05-DOSE 885 MG.
     Route: 042
     Dates: start: 20051205, end: 20051205
  3. COUMADIN [Suspect]
  4. MEGACE [Concomitant]
     Dosage: INITIALLY RECEIVED 400 MG ONCE A DAY.
     Dates: start: 20051215
  5. FOLIC ACID [Concomitant]
     Dosage: DAILY
  6. VITAMIN B-12 [Concomitant]
  7. MULTIVITAMIN [Concomitant]
  8. ZINC SULFATE [Concomitant]
     Dates: start: 20051216
  9. ASCORBIC ACID [Concomitant]
  10. FERROUS SULFATE TAB [Concomitant]
     Route: 048
     Dates: start: 20051215
  11. POTASSIUM PHOSPHATES [Concomitant]
     Route: 048
  12. SPIRIVA [Concomitant]
     Dosage: 2 PUFFS DAILY-18 MCG INHL.
     Route: 055
     Dates: start: 20051215
  13. COMBIVENT [Concomitant]
     Dosage: 2 PUFFS FOUR TIMES A DAY-14.3 GM, I DOSE INHL.
     Route: 055
     Dates: start: 20051215
  14. ZOFRAN [Concomitant]
     Dosage: 8 MG ONE TABLET EVERY SIX HOURS AS NEEDED.
     Route: 048
     Dates: start: 20051215
  15. PHENERGAN [Concomitant]
     Dosage: 25 MG ONE TABLET EVERY SIX HOURS AS NEEDED.
     Route: 048
     Dates: start: 20051215
  16. ATIVAN [Concomitant]
     Dosage: 1 MG EVERY 8 HOURS AS NEEDED.
     Route: 048
     Dates: start: 20051215
  17. HYDROCODONE BITARTRATE [Concomitant]
     Dosage: 7.5/500 MG
     Route: 048
     Dates: start: 20051215
  18. TYLENOL (CAPLET) [Concomitant]
  19. SALBUTAMOL [Concomitant]
     Dosage: 1 DOSE INHL.
     Route: 055
     Dates: start: 20051215
  20. ATROVENT [Concomitant]
     Dosage: 1 DOSE INHL.
     Route: 055
     Dates: start: 20051215
  21. NORMAL SALINE [Concomitant]
     Dosage: 1-10 FLUSH INTRAVENOUS AS NECESSARY.
     Dates: start: 20051215
  22. TEQUIN [Concomitant]
     Dosage: 400 MG/200 ML INTRAVENOUS PIGGYBACK EVERY DAY.
     Route: 042
     Dates: start: 20051215
  23. MULTIPLE VITAMIN [Concomitant]
     Dates: start: 20051216

REACTIONS (4)
  - ATRIAL FIBRILLATION [None]
  - CARDIO-RESPIRATORY ARREST [None]
  - DRUG TOXICITY [None]
  - HYPOTENSION [None]
